FAERS Safety Report 4588820-4 (Version None)
Quarter: 2005Q1

REPORT INFORMATION
  Report Type: 
  Country: None (occurrence: None)
  Receive Date: 20050222
  Receipt Date: 20050211
  Transmission Date: 20050727
  Serious: Yes (Death)
  Sender: FDA-Public Use
  Company Number: US-BRISTOL-MYERS SQUIBB COMPANY-12860235

PATIENT
  Age: 42 Year
  Sex: Female

DRUGS (1)
  1. PARAPLATIN [Suspect]
     Dates: start: 20050126, end: 20050126

REACTIONS (1)
  - DEATH [None]
